FAERS Safety Report 13622633 (Version 1)
Quarter: 2017Q2

REPORT INFORMATION
  Report Type: Spontaneous
  Country: PT (occurrence: PT)
  Receive Date: 20170607
  Receipt Date: 20170607
  Transmission Date: 20170830
  Serious: Yes (Other)
  Sender: FDA-Public Use
  Company Number: PT-VISTAPHARM, INC.-VER201706-000111

PATIENT
  Sex: Male

DRUGS (1)
  1. VALPROIC ACID. [Suspect]
     Active Substance: VALPROIC ACID
     Indication: SCHIZOPHRENIA

REACTIONS (5)
  - Aggression [Unknown]
  - Schizophrenia [Unknown]
  - Irritability [Unknown]
  - Cognitive disorder [Unknown]
  - Condition aggravated [Unknown]
